FAERS Safety Report 4306548-2 (Version None)
Quarter: 2004Q1

REPORT INFORMATION
  Report Type: 
  Country: None (occurrence: None)
  Receive Date: 20040225
  Receipt Date: 20030829
  Transmission Date: 20041129
  Serious: No
  Sender: FDA-Public Use
  Company Number: US-BRISTOL-MYERS SQUIBB COMPANY-12388765

PATIENT
  Sex: Female

DRUGS (2)
  1. EXCEDRIN ES TABS [Suspect]
     Route: 048
     Dates: start: 20030829
  2. ADVIL [Concomitant]
     Indication: TOOTHACHE
     Dates: start: 20030828

REACTIONS (1)
  - DIZZINESS [None]
